FAERS Safety Report 7720616-4 (Version None)
Quarter: 2011Q3

REPORT INFORMATION
  Report Type: 
  Country: None (occurrence: None)
  Receive Date: 20110825
  Receipt Date: 20110809
  Transmission Date: 20111222
  Serious: Yes (Hospitalization)
  Sender: FDA-Public Use
  Company Number: 15016033

PATIENT
  Age: 83 Year
  Sex: Female

DRUGS (7)
  1. WARFARIN SODIUM [Suspect]
     Indication: EMBOLISM
     Dosage: 3 MILLIGRAM 1 DAY ORAL
     Route: 048
     Dates: start: 20090918, end: 20100219
  2. PLACEBO [Suspect]
     Dosage: ORAL
     Route: 048
     Dates: start: 20090918, end: 20100219
  3. FELODIPINE [Concomitant]
  4. APIXABAN [Suspect]
     Indication: EMBOLISM
     Dosage: 10 MILLIGRAM 1 DAY ORAL
     Route: 048
     Dates: start: 20090918, end: 20100219
  5. RAMIPRIL [Concomitant]
  6. ENOXAPARIN SODIUM [Suspect]
     Indication: EMBOLISM
     Dosage: 120 MILLIGRAM   1 DAY  SC
     Route: 058
     Dates: start: 20090918, end: 20090922
  7. PANTOPRAZOLE SODIUM [Concomitant]

REACTIONS (5)
  - HAEMORRHAGE [None]
  - HAEMATURIA [None]
  - VOMITING [None]
  - EXTRAVASATION BLOOD [None]
  - ASTHENIA [None]
